FAERS Safety Report 5186110-2 (Version None)
Quarter: 2006Q4

REPORT INFORMATION
  Report Type: 
  Country: None (occurrence: None)
  Receive Date: 20061220
  Receipt Date: 20061024
  Transmission Date: 20070319
  Serious: No
  Sender: FDA-Public Use
  Company Number: US-GLAXOSMITHKLINE-A0624715A

PATIENT

DRUGS (1)
  1. NICODERM CQ [Suspect]

REACTIONS (1)
  - FEELING ABNORMAL [None]
